FAERS Safety Report 23090004 (Version 1)
Quarter: 2023Q4

REPORT INFORMATION
  Report Type: Spontaneous
  Country: CA (occurrence: CA)
  Receive Date: 20231020
  Receipt Date: 20231020
  Transmission Date: 20240110
  Serious: Yes (Other)
  Sender: FDA-Public Use
  Company Number: CA-FreseniusKabi-FK202316708

PATIENT
  Age: 35 Year
  Sex: Male
  Weight: 60 kg

DRUGS (3)
  1. FOLIC ACID [Suspect]
     Active Substance: FOLIC ACID
     Indication: Product used for unknown indication
     Dosage: DOSAGE FORM: NOT SPECIFIED
     Route: 065
  2. METHOTREXATE SODIUM [Suspect]
     Active Substance: METHOTREXATE SODIUM
     Indication: Product used for unknown indication
  3. REMICADE [Suspect]
     Active Substance: INFLIXIMAB
     Indication: Product used for unknown indication
     Dosage: DOSAGE FORM : POWDER FOR SOLUTION INTRAVENOUS
     Route: 065

REACTIONS (2)
  - Crohn^s disease [Unknown]
  - Rectal haemorrhage [Unknown]
